FAERS Safety Report 4805399-X (Version None)
Quarter: 2005Q4

REPORT INFORMATION
  Report Type: 
  Country: None (occurrence: None)
  Receive Date: 20051017
  Receipt Date: 20051003
  Transmission Date: 20060501
  Serious: Yes (Hospitalization)
  Sender: FDA-Public Use
  Company Number: MEDI-0003721

PATIENT
  Age: 42 Year
  Sex: Female

DRUGS (2)
  1. ETHYOL [Suspect]
     Indication: CHEMOTHERAPY
     Dosage: 500 MG, SUBCUTANEOUS
     Route: 058
     Dates: end: 20050930
  2. UNSPECIFIED CHEMOTHERAPEUTIC AGENT [Concomitant]

REACTIONS (3)
  - CHILLS [None]
  - INJECTION SITE ERYTHEMA [None]
  - RASH [None]
